FAERS Safety Report 14636826 (Version 2)
Quarter: 2018Q2

REPORT INFORMATION
  Report Type: Spontaneous
  Country: JP (occurrence: JP)
  Receive Date: 20180314
  Receipt Date: 20180511
  Transmission Date: 20180711
  Serious: Yes (Hospitalization)
  Sender: FDA-Public Use
  Company Number: JP-BRISTOL-MYERS SQUIBB COMPANY-BMS-2018-022526

PATIENT
  Age: 59 Year
  Sex: Male
  Weight: 57 kg

DRUGS (14)
  1. SUREPOST [Suspect]
     Active Substance: REPAGLINIDE
     Indication: PRODUCT USED FOR UNKNOWN INDICATION
     Dosage: UNK, TID, DRUG REINTRODUCED
     Route: 065
     Dates: start: 20160628
  2. PREDNISOLONE. [Concomitant]
     Active Substance: PREDNISOLONE
     Indication: INTERSTITIAL LUNG DISEASE
     Dosage: 25 MG, QD, ONLY MORNING
     Route: 065
     Dates: start: 2007
  3. METGLUCO [Suspect]
     Active Substance: METFORMIN HYDROCHLORIDE
     Indication: PRODUCT USED FOR UNKNOWN INDICATION
     Dosage: 500 MG, QD, DOSE REINTRODUCED
     Route: 065
     Dates: start: 20160628
  4. SUREPOST [Suspect]
     Active Substance: REPAGLINIDE
     Indication: TYPE 2 DIABETES MELLITUS
     Dosage: 0.5 MG, TID
     Route: 048
     Dates: start: 20140805, end: 20160605
  5. SEIBULE [Concomitant]
     Active Substance: MIGLITOL
     Indication: DIABETES MELLITUS
     Dosage: 225 MG, TID, IN THREE DIVIDED DOSE
     Route: 065
     Dates: start: 20111005
  6. SEIBULE [Concomitant]
     Active Substance: MIGLITOL
     Indication: PRODUCT USED FOR UNKNOWN INDICATION
     Dosage: 75 MG, TID, DRUG REINTRODUCED
     Route: 065
     Dates: start: 20160628
  7. LANSOPRAZOLE. [Concomitant]
     Active Substance: LANSOPRAZOLE
     Indication: PRODUCT USED FOR UNKNOWN INDICATION
     Route: 048
  8. TACROLIMUS. [Interacting]
     Active Substance: TACROLIMUS
     Indication: PRODUCT USED FOR UNKNOWN INDICATION
     Dosage: UNK
     Route: 065
  9. AMITRIPTYLINE [Interacting]
     Active Substance: AMITRIPTYLINE
     Indication: SUBSTANCE-INDUCED PSYCHOTIC DISORDER
     Dosage: 20 MG, QD, BEFORE SLEEP
     Route: 048
     Dates: start: 2013, end: 20160621
  10. ATORVASTATIN [Concomitant]
     Active Substance: ATORVASTATIN
     Indication: DYSLIPIDAEMIA
     Route: 065
  11. AMITRIPTYLINE [Interacting]
     Active Substance: AMITRIPTYLINE
     Indication: PRODUCT USED FOR UNKNOWN INDICATION
     Dosage: 30 MG, QD, DOSE INCREASED
     Route: 048
     Dates: start: 20160622
  12. MICARDIS [Concomitant]
     Active Substance: TELMISARTAN
     Indication: PRODUCT USED FOR UNKNOWN INDICATION
     Route: 065
  13. METGLUCO [Suspect]
     Active Substance: METFORMIN HYDROCHLORIDE
     Indication: DIABETES MELLITUS
     Dosage: 500 MG, QD, ONLY MORNING
     Route: 048
     Dates: start: 20110907
  14. MIGLITOL. [Concomitant]
     Active Substance: MIGLITOL
     Indication: DIABETES MELLITUS
     Dosage: UNK
     Route: 065

REACTIONS (2)
  - Hypoglycaemia [Recovered/Resolved]
  - Drug interaction [Unknown]

NARRATIVE: CASE EVENT DATE: 20160627
